FAERS Safety Report 8502208-2 (Version None)
Quarter: 2012Q3

REPORT INFORMATION
  Report Type: 
  Country: None (occurrence: None)
  Receive Date: 20120711
  Receipt Date: 20120702
  Transmission Date: 20120928
  Serious: Yes (Hospitalization)
  Sender: FDA-Public Use
  Company Number: IL-ABBOTT-12P-082-0952979-00

PATIENT
  Sex: Female
  Weight: 36.5 kg

DRUGS (3)
  1. FLAGYL [Concomitant]
     Indication: CROHN'S DISEASE
     Route: 048
  2. HUMIRA [Suspect]
     Indication: CROHN'S DISEASE
     Route: 058
     Dates: start: 20120404, end: 20120618
  3. VENOFER [Concomitant]
     Indication: ANAEMIA
     Route: 042

REACTIONS (9)
  - DIARRHOEA HAEMORRHAGIC [None]
  - PYREXIA [None]
  - LYMPH NODE PAIN [None]
  - ABDOMINAL PAIN UPPER [None]
  - EYE INFECTION [None]
  - CHILLS [None]
  - CROHN'S DISEASE [None]
  - DECREASED APPETITE [None]
  - WEIGHT DECREASED [None]
